FAERS Safety Report 14923559 (Version 1)
Quarter: 2018Q2

REPORT INFORMATION
  Report Type: Spontaneous
  Country: US (occurrence: US)
  Receive Date: 20180503
  Receipt Date: 20180503
  Transmission Date: 20180711
  Serious: No
  Sender: FDA-Public Use
  Company Number: None

PATIENT
  Age: 53 Year
  Sex: Male

DRUGS (5)
  1. SYMBICORT [Suspect]
     Active Substance: BUDESONIDE\FORMOTEROL FUMARATE DIHYDRATE
     Indication: ASTHMA
     Dosage: ?          QUANTITY:2 SPRAY(S);?
     Route: 055
     Dates: start: 20120201, end: 20180502
  2. ALBUTEROL SULFATE. [Concomitant]
     Active Substance: ALBUTEROL SULFATE
  3. ADVIL LIQUIGELS [Concomitant]
     Active Substance: IBUPROFEN
  4. CITRIZINE [Concomitant]
  5. CENTRUM FOR MEN MULTI VITAMIN GUMMIES [Concomitant]

REACTIONS (1)
  - Blister [None]

NARRATIVE: CASE EVENT DATE: 20180428
